FAERS Safety Report 4269749-8 (Version None)
Quarter: 2004Q1

REPORT INFORMATION
  Report Type: 
  Country: None (occurrence: None)
  Receive Date: 20040106
  Receipt Date: 20031222
  Transmission Date: 20041129
  Serious: Yes (Hospitalization)
  Sender: FDA-Public Use
  Company Number: 200308906

PATIENT
  Age: 16 Year
  Sex: Male

DRUGS (2)
  1. GAMMAR-P I.V. [Suspect]
     Indication: IMMUNODEFICIENCY
  2. GAMMAR-P I.V. [Suspect]

REACTIONS (1)
  - PNEUMONIA INFLUENZAL [None]
